FAERS Safety Report 11372387 (Version 1)
Quarter: 2015Q3

REPORT INFORMATION
  Report Type: Spontaneous
  Country: US (occurrence: US)
  Receive Date: 20150811
  Receipt Date: 20150811
  Transmission Date: 20151125
  Serious: No
  Sender: FDA-Public Use
  Company Number: US-ELI_LILLY_AND_COMPANY-US201305010047

PATIENT
  Age: 52 Year
  Sex: Male

DRUGS (1)
  1. AXIRON [Suspect]
     Active Substance: TESTOSTERONE
     Indication: HYPOTHALAMO-PITUITARY DISORDER
     Dosage: UNK
     Route: 048
     Dates: start: 201305

REACTIONS (6)
  - Underdose [Unknown]
  - Application site pruritus [Recovered/Resolved]
  - Off label use [Unknown]
  - Paraesthesia [Recovered/Resolved]
  - Swelling face [Recovered/Resolved]
  - Pruritus [Recovered/Resolved]
